FAERS Safety Report 7987063-1 (Version None)
Quarter: 2011Q4

REPORT INFORMATION
  Report Type: 
  Country: None (occurrence: None)
  Receive Date: 20111216
  Receipt Date: 20111018
  Transmission Date: 20120403
  Serious: Yes (Other)
  Sender: FDA-Public Use
  Company Number: US-BRISTOL-MYERS SQUIBB COMPANY-16097081

PATIENT
  Age: 56 Year
  Sex: Male
  Weight: 99 kg

DRUGS (9)
  1. METOPROLOL TARTRATE [Concomitant]
  2. ABILIFY [Suspect]
     Dosage: WEANING DOSE:7.5MG.
     Route: 048
  3. KLONOPIN [Concomitant]
  4. LISINOPRIL [Concomitant]
  5. LANTUS [Concomitant]
     Dosage: 1DF=30U IN AM
  6. HUMULIN INSULIN [Concomitant]
     Dosage: ON SLIDING 2-8U AS NEEDED.
  7. GLIPIZIDE [Concomitant]
  8. BACLOFEN [Concomitant]
  9. ASPIRIN [Concomitant]

REACTIONS (5)
  - HYPERSENSITIVITY [None]
  - INSOMNIA [None]
  - VISUAL IMPAIRMENT [None]
  - DIABETES MELLITUS [None]
  - THIRST [None]
